FAERS Safety Report 5119377-7 (Version None)
Quarter: 2006Q3

REPORT INFORMATION
  Report Type: 
  Country: None (occurrence: None)
  Receive Date: 20060928
  Receipt Date: 20060918
  Transmission Date: 20061208
  Serious: Yes (Death, Other)
  Sender: FDA-Public Use
  Company Number: 2006032706

PATIENT
  Age: 53 Year
  Sex: Female
  Weight: 113.3993 kg

DRUGS (19)
  1. DILANTIN KAPSEAL [Suspect]
     Indication: CONVULSION
     Dosage: 300 MG (100 MG, 3 IN 1 D), ORAL
     Route: 048
     Dates: end: 20050912
  2. ANTIBIOTICS (ANTIBIOTICS) [Suspect]
     Indication: CONVULSION
     Dosage: 300 MG (100 MG, 3 IN 1 D), ORAL
     Route: 048
     Dates: end: 20050912
  3. HYZAAR [Concomitant]
  4. INDOCIN [Concomitant]
  5. LORTAB [Concomitant]
  6. PREDNISONE TAB [Concomitant]
  7. ALTACE [Concomitant]
  8. PEPCID [Concomitant]
  9. BUMEX [Concomitant]
  10. DOPAMINE HCL [Concomitant]
  11. GLUCOTROL XL [Concomitant]
  12. CIPROFLOXACIN [Concomitant]
  13. RISPERDAL [Concomitant]
  14. ZOLOFT [Concomitant]
  15. HALDOL [Concomitant]
  16. LEVAQUIN [Concomitant]
  17. COUMADIN [Concomitant]
  18. BENADRYL [Concomitant]
  19. LANTUS [Concomitant]

REACTIONS (22)
  - ABNORMAL BEHAVIOUR [None]
  - ANOXIC ENCEPHALOPATHY [None]
  - BRADYCARDIA [None]
  - BRAIN DAMAGE [None]
  - CARDIAC ARREST [None]
  - DEHYDRATION [None]
  - DEPRESSED LEVEL OF CONSCIOUSNESS [None]
  - EOSINOPHILIA [None]
  - ERYTHEMA MULTIFORME [None]
  - GRAND MAL CONVULSION [None]
  - HYPERSENSITIVITY [None]
  - HYPONATRAEMIA [None]
  - HYPOTENSION [None]
  - HYPOVOLAEMIA [None]
  - MALNUTRITION [None]
  - ORAL CANDIDIASIS [None]
  - PITUITARY TUMOUR BENIGN [None]
  - RENAL FAILURE ACUTE [None]
  - RESPIRATORY ARREST [None]
  - RESPIRATORY FAILURE [None]
  - STATUS EPILEPTICUS [None]
  - STEVENS-JOHNSON SYNDROME [None]
